FAERS Safety Report 7156929-7 (Version None)
Quarter: 2010Q4

REPORT INFORMATION
  Report Type: 
  Country: None (occurrence: None)
  Receive Date: 20101214
  Receipt Date: 20101202
  Transmission Date: 20110411
  Serious: Yes (Congenital Anomaly)
  Sender: FDA-Public Use
  Company Number: GXKR2010GB13683

PATIENT

DRUGS (2)
  1. SERTRALINE (NGX) [Suspect]
     Dosage: MATERNAL DOSE: 100 MG/DAY
     Route: 064
     Dates: start: 20101027
  2. SERTRALINE (NGX) [Suspect]
     Dosage: MATERNAL DOSE: 50 MG/DAY
     Route: 064

REACTIONS (2)
  - ANENCEPHALY [None]
  - DRUG EXPOSURE DURING PREGNANCY [None]
